FAERS Safety Report 6172729-9 (Version None)
Quarter: 2009Q2

REPORT INFORMATION
  Report Type: 
  Country: None (occurrence: None)
  Receive Date: 20090430
  Receipt Date: 20090424
  Transmission Date: 20091009
  Serious: Yes (Hospitalization)
  Sender: FDA-Public Use
  Company Number: DE-BIOGENIDEC-2009BI012700

PATIENT
  Age: 54 Year
  Sex: Female
  Weight: 74 kg

DRUGS (2)
  1. AVONEX [Suspect]
     Indication: RELAPSING-REMITTING MULTIPLE SCLEROSIS
     Route: 030
     Dates: start: 20081117, end: 20090218
  2. AVONEX [Suspect]
     Route: 030
     Dates: start: 20090311

REACTIONS (3)
  - FEAR [None]
  - INFLUENZA LIKE ILLNESS [None]
  - OSTEONECROSIS [None]
